FAERS Safety Report 8431175-5 (Version None)
Quarter: 2012Q2

REPORT INFORMATION
  Report Type: 
  Country: None (occurrence: None)
  Receive Date: 20120612
  Receipt Date: 20120606
  Transmission Date: 20120825
  Serious: Yes (Hospitalization, Other)
  Sender: FDA-Public Use
  Company Number: PHHY2012BR049992

PATIENT
  Sex: Female

DRUGS (1)
  1. EXELON [Suspect]
     Dosage: EXELON TTS 9MG/5CM2
     Route: 062

REACTIONS (2)
  - DEMENTIA ALZHEIMER'S TYPE [None]
  - DIVERTICULITIS [None]
